FAERS Safety Report 22648791 (Version 2)
Quarter: 2023Q4

REPORT INFORMATION
  Report Type: Spontaneous
  Country: US (occurrence: US)
  Receive Date: 20230628
  Receipt Date: 20231130
  Transmission Date: 20240110
  Serious: No
  Sender: FDA-Public Use
  Company Number: US-BRISTOL-MYERS SQUIBB COMPANY-2023-090571

PATIENT
  Age: 83 Year
  Sex: Female
  Weight: 82.55 kg

DRUGS (1)
  1. LENALIDOMIDE [Suspect]
     Active Substance: LENALIDOMIDE
     Indication: Plasma cell myeloma
     Route: 048
     Dates: start: 20221114

REACTIONS (2)
  - Blood iron decreased [Recovering/Resolving]
  - Haemoglobin abnormal [Unknown]
